FAERS Safety Report 6218364-5 (Version None)
Quarter: 2009Q2

REPORT INFORMATION
  Report Type: 
  Country: None (occurrence: None)
  Receive Date: 20090608
  Receipt Date: 20090526
  Transmission Date: 20091009
  Serious: Yes (Death, Hospitalization)
  Sender: FDA-Public Use
  Company Number: A0788872A

PATIENT
  Age: 59 Year
  Sex: Female
  Weight: 75 kg

DRUGS (5)
  1. AVANDIA [Suspect]
     Dosage: 8MG PER DAY
     Route: 048
     Dates: start: 19991213, end: 20060905
  2. GLUCOPHAGE [Concomitant]
     Dates: start: 20000211, end: 20030701
  3. GLARGINE [Concomitant]
     Dates: start: 20031213, end: 20060331
  4. TOPROL-XL [Concomitant]
     Dates: start: 20040901, end: 20080801
  5. LIPITOR [Concomitant]
     Dates: start: 20000201, end: 20080801

REACTIONS (2)
  - MYOCARDIAL INFARCTION [None]
  - SEPTIC SHOCK [None]
